FAERS Safety Report 20911351 (Version 2)
Quarter: 2022Q3

REPORT INFORMATION
  Report Type: Spontaneous
  Country: US (occurrence: US)
  Receive Date: 20220603
  Receipt Date: 20220715
  Transmission Date: 20221026
  Serious: Yes (Other)
  Sender: FDA-Public Use
  Company Number: US-BRISTOL-MYERS SQUIBB COMPANY-2022-046726

PATIENT
  Age: 74 Year
  Sex: Male

DRUGS (1)
  1. POMALYST [Suspect]
     Active Substance: POMALIDOMIDE
     Indication: Plasma cell myeloma
     Dosage: TAKE 1 CAPSULE BY MOUTH EVERY DAY, DAYS 1-21 OF EACH 28 DAY CYCLE. TAKE WHOLE W/ WATER, W/ OR W/O FO
     Route: 048
     Dates: start: 20210625

REACTIONS (2)
  - COVID-19 [Unknown]
  - Neutropenia [Unknown]
